FAERS Safety Report 5615053-2 (Version None)
Quarter: 2008Q1

REPORT INFORMATION
  Report Type: 
  Country: None (occurrence: None)
  Receive Date: 20080205
  Receipt Date: 20080205
  Transmission Date: 20080703
  Serious: Yes (Death)
  Sender: FDA-Public Use
  Company Number: None

PATIENT
  Age: 21 Year
  Sex: Female
  Weight: 43.0917 kg

DRUGS (2)
  1. LEXAPRO [Suspect]
  2. ZOLOFT [Suspect]

REACTIONS (2)
  - BIPOLAR DISORDER [None]
  - CONVULSION [None]
